FAERS Safety Report 5597584-7 (Version None)
Quarter: 2008Q1

REPORT INFORMATION
  Report Type: 
  Country: None (occurrence: None)
  Receive Date: 20080121
  Receipt Date: 20080110
  Transmission Date: 20080703
  Serious: Yes (Hospitalization)
  Sender: FDA-Public Use
  Company Number: B0483716A

PATIENT
  Age: 96 Year
  Sex: Female

DRUGS (7)
  1. ARIXTRA [Suspect]
     Indication: PULMONARY EMBOLISM
     Dosage: 5MG PER DAY
     Route: 058
     Dates: start: 20070503, end: 20070517
  2. DISCOTRINE [Concomitant]
     Indication: PROPHYLAXIS
     Route: 062
     Dates: start: 20030101
  3. COZAAR [Concomitant]
     Dosage: 50MG PER DAY
     Route: 048
     Dates: start: 20030101
  4. BISOPROLOL FUMARATE [Concomitant]
     Dosage: 10MG PER DAY
     Route: 048
     Dates: start: 20030101
  5. LASIX [Concomitant]
     Dosage: 40MG PER DAY
     Route: 048
     Dates: end: 20070516
  6. LEXOMIL [Concomitant]
     Indication: ANXIETY
     Dosage: 6MG PER DAY
     Route: 048
  7. TANAKAN [Concomitant]
     Dosage: 40MG PER DAY
     Route: 048
     Dates: end: 20070516

REACTIONS (7)
  - ANAEMIA [None]
  - COMPARTMENT SYNDROME [None]
  - HAEMATOMA [None]
  - HAEMORRHAGE SUBCUTANEOUS [None]
  - OEDEMA PERIPHERAL [None]
  - SKIN NECROSIS [None]
  - VARICOSE VEIN RUPTURED [None]
